FAERS Safety Report 12130136 (Version 1)
Quarter: 2016Q1

REPORT INFORMATION
  Report Type: Spontaneous
  Country: US (occurrence: US)
  Receive Date: 20160229
  Receipt Date: 20160229
  Transmission Date: 20160526
  Serious: No
  Sender: FDA-Public Use
  Company Number: US-ACORDA-ACO_24448_2011

PATIENT
  Age: 33 Year
  Sex: Male
  Weight: 113.38 kg

DRUGS (5)
  1. LIPITOR [Concomitant]
     Active Substance: ATORVASTATIN CALCIUM
     Dosage: UNK
  2. PROVIGIL [Concomitant]
     Active Substance: MODAFINIL
     Dosage: UNK
  3. AMPYRA [Suspect]
     Active Substance: DALFAMPRIDINE
     Indication: GAIT DISTURBANCE
     Dosage: 10 MG, BID
     Route: 048
     Dates: start: 201104, end: 2011
  4. METOPROLOL. [Concomitant]
     Active Substance: METOPROLOL
     Dosage: UNK
  5. RANITIDINE [Concomitant]
     Active Substance: RANITIDINE\RANITIDINE HYDROCHLORIDE
     Dosage: UNK

REACTIONS (9)
  - Anxiety [Unknown]
  - Asthma [Unknown]
  - Drug dose omission [Unknown]
  - Arthralgia [Not Recovered/Not Resolved]
  - Blood cholesterol increased [Unknown]
  - Arthritis [Unknown]
  - Depression [None]
  - Hypertension [Unknown]
  - Joint stiffness [Not Recovered/Not Resolved]

NARRATIVE: CASE EVENT DATE: 2011
